FAERS Safety Report 20934486 (Version 1)
Quarter: 2022Q2

REPORT INFORMATION
  Report Type: Spontaneous
  Country: CA (occurrence: CA)
  Receive Date: 20220608
  Receipt Date: 20220608
  Transmission Date: 20220721
  Serious: Yes (Other)
  Sender: FDA-Public Use
  Company Number: CA-SCALL-2022-CA-001152

PATIENT
  Age: 71 Year
  Sex: Male

DRUGS (12)
  1. DUTASTERIDE [Suspect]
     Active Substance: DUTASTERIDE
     Indication: Lower urinary tract symptoms
     Dosage: 0.5 MG, QD 1 EVERY 1 DAYS
     Route: 048
  2. TAMSULOSIN [Concomitant]
     Active Substance: TAMSULOSIN
  3. TELMISARTAN [Concomitant]
     Active Substance: TELMISARTAN
  4. TOVIAZ [Concomitant]
     Active Substance: FESOTERODINE FUMARATE
  5. BILASTINE [Concomitant]
     Active Substance: BILASTINE
  6. CLOBETASOL [Concomitant]
     Active Substance: CLOBETASOL
     Route: 050
  7. GLICLAZIDE [Concomitant]
     Active Substance: GLICLAZIDE
  8. JENTADUETO [Concomitant]
     Active Substance: LINAGLIPTIN\METFORMIN HYDROCHLORIDE
     Route: 065
  9. LEVOTHYROXINE [Concomitant]
     Active Substance: LEVOTHYROXINE
  10. NASONEX [Concomitant]
     Active Substance: MOMETASONE FUROATE
     Route: 065
  11. PRAVASTATIN SODIUM [Concomitant]
     Active Substance: PRAVASTATIN SODIUM
  12. SYMBICORT [Concomitant]
     Active Substance: BUDESONIDE\FORMOTEROL FUMARATE DIHYDRATE

REACTIONS (3)
  - Hypertonic bladder [Recovered/Resolved]
  - Drug ineffective [Recovered/Resolved]
  - Product substitution issue [Recovered/Resolved]
